FAERS Safety Report 6337936-0 (Version None)
Quarter: 2009Q3

REPORT INFORMATION
  Report Type: 
  Country: None (occurrence: None)
  Receive Date: 20090902
  Receipt Date: 20090825
  Transmission Date: 20100115
  Serious: Yes (Other)
  Sender: FDA-Public Use
  Company Number: SG-BAYER-200929963GPV

PATIENT
  Age: 59 Year
  Sex: Male

DRUGS (7)
  1. ASPIRIN [Suspect]
     Indication: THROMBOLYSIS
     Route: 048
  2. CLOPIDOGREL [Suspect]
     Indication: THROMBOLYSIS
     Route: 048
  3. RECOMBINANT TISSUE PLASMINOGEN ACTIVATOR [Suspect]
     Indication: ACUTE MYOCARDIAL INFARCTION
     Dosage: OVER 30 MINUTES
     Route: 042
  4. RECOMBINANT TISSUE PLASMINOGEN ACTIVATOR [Suspect]
     Dosage: OVER 60 MINUTES
     Route: 042
  5. RECOMBINANT TISSUE PLASMINOGEN ACTIVATOR [Suspect]
     Dosage: BOLUS DOSE
     Route: 042
  6. UNFRACTIONATED HEPARIN [Suspect]
     Indication: THROMBOLYSIS
     Dosage: WEIGHT-ADJUSTED LOADING DOSE
     Route: 042
  7. UNFRACTIONATED HEPARIN [Suspect]
     Dosage: WEIGHT-ADJUSTED LOADING DOSE
     Route: 042

REACTIONS (2)
  - THYROID HAEMORRHAGE [None]
  - TRACHEAL OBSTRUCTION [None]
